APPROVED DRUG PRODUCT: SULFACETAMIDE SODIUM
Active Ingredient: SULFACETAMIDE SODIUM
Strength: 30%
Dosage Form/Route: SOLUTION/DROPS;OPHTHALMIC
Application: A040216 | Product #001
Applicant: EPIC PHARMA LLC
Approved: May 25, 1999 | RLD: No | RS: No | Type: DISCN